FAERS Safety Report 4673747-X (Version None)
Quarter: 2005Q2

REPORT INFORMATION
  Report Type: 
  Country: None (occurrence: None)
  Receive Date: 20050524
  Receipt Date: 20050516
  Transmission Date: 20051028
  Serious: Yes (Hospitalization)
  Sender: FDA-Public Use
  Company Number: 2005076199

PATIENT
  Age: 75 Year
  Sex: Male

DRUGS (6)
  1. TAHOR (ATORVASTATIN) [Suspect]
     Indication: HYPERCHOLESTEROLAEMIA
     Dosage: 10 MG (1 IN 1 D), ORAL
     Route: 048
     Dates: start: 20050215, end: 20050221
  2. RAMIPRIL [Concomitant]
  3. KARDEGIC          (ACETYLSALICYLATE LYSINE) [Concomitant]
  4. AMLODIPINE [Concomitant]
  5. INSULATARD NPH HUMAN [Concomitant]
  6. FORTZAAR            (HYDROCHLOROTHIAZIDE, OSARTAN POTASSIUM) [Concomitant]

REACTIONS (2)
  - RHABDOMYOLYSIS [None]
  - SEPSIS [None]
